FAERS Safety Report 18585570 (Version 1)
Quarter: 2020Q4

REPORT INFORMATION
  Report Type: Spontaneous
  Country: US (occurrence: US)
  Receive Date: 20201204
  Receipt Date: 20201204
  Transmission Date: 20210114
  Serious: No
  Sender: FDA-Public Use
  Company Number: None

PATIENT
  Age: 49 Year
  Sex: Female

DRUGS (1)
  1. CAPECITABINE TAB 500 MG [Suspect]
     Active Substance: CAPECITABINE
     Route: 048
     Dates: start: 20200422, end: 20201201

REACTIONS (4)
  - Disease progression [None]
  - COVID-19 [None]
  - White blood cell count decreased [None]
  - Therapy cessation [None]

NARRATIVE: CASE EVENT DATE: 20201106
